FAERS Safety Report 20245785 (Version 1)
Quarter: 2021Q4

REPORT INFORMATION
  Report Type: Report from Study
  Country: BE (occurrence: None)
  Receive Date: 20211229
  Receipt Date: 20211229
  Transmission Date: 20220303
  Serious: Yes (Hospitalization)
  Sender: FDA-Public Use
  Company Number: BE-ROCHE-2984586

PATIENT
  Age: 61 Year
  Sex: Female
  Weight: 58.8 kg

DRUGS (5)
  1. BEVACIZUMAB [Suspect]
     Active Substance: BEVACIZUMAB
     Indication: Pleural mesothelioma malignant
     Dosage: ON 17/NOV/2021, RECEIVED LAST ADMINISTRATION BEFORE SAE
     Route: 042
     Dates: start: 20210915
  2. ATEZOLIZUMAB [Suspect]
     Active Substance: ATEZOLIZUMAB
     Indication: Pleural mesothelioma malignant
     Dosage: ON 17/NOV/2021, RECEIVED LAST ADMINISTRATION BEFORE SAE
     Route: 041
     Dates: start: 20210915
  3. CARBOPLATIN [Suspect]
     Active Substance: CARBOPLATIN
     Indication: Pleural mesothelioma malignant
     Dosage: ON 17/NOV/2021, RECEIVED LAST ADMINISTRATION BEFORE SAE
     Route: 042
     Dates: start: 20210915
  4. PEMETREXED [Suspect]
     Active Substance: PEMETREXED
     Indication: Pleural mesothelioma malignant
     Dosage: ON 17/NOV/2021, RECEIVED LAST ADMINISTRATION BEFORE SAE
     Route: 042
     Dates: start: 20210915
  5. HUMAN RED BLOOD CELL [Concomitant]
     Active Substance: HUMAN RED BLOOD CELL

REACTIONS (1)
  - Anaemia [Recovered/Resolved]

NARRATIVE: CASE EVENT DATE: 20211203
